FAERS Safety Report 14139087 (Version 1)
Quarter: 2017Q4

REPORT INFORMATION
  Report Type: Spontaneous
  Country: US (occurrence: US)
  Receive Date: 20171027
  Receipt Date: 20171027
  Transmission Date: 20180321
  Serious: No
  Sender: FDA-Public Use
  Company Number: US-009507513-1710USA006403

PATIENT
  Age: 19 Year
  Sex: Female
  Weight: 90.7 kg

DRUGS (1)
  1. NEXPLANON [Suspect]
     Active Substance: ETONOGESTREL
     Indication: CONTRACEPTION
     Dosage: 1 DF, 3 YEAR IN THE LEF ARM
     Route: 059
     Dates: start: 20160623

REACTIONS (10)
  - Weight increased [Unknown]
  - Decreased appetite [Unknown]
  - Hypersomnia [Unknown]
  - Hunger [Unknown]
  - Dizziness [Unknown]
  - Feeling hot [Unknown]
  - Depression [Unknown]
  - Back pain [Unknown]
  - Hypomenorrhoea [Unknown]
  - Headache [Unknown]

NARRATIVE: CASE EVENT DATE: 201607
